FAERS Safety Report 6958115-X (Version None)
Quarter: 2010Q3

REPORT INFORMATION
  Report Type: 
  Country: None (occurrence: None)
  Receive Date: 20100831
  Receipt Date: 20100819
  Transmission Date: 20110219
  Serious: Yes (Hospitalization)
  Sender: FDA-Public Use
  Company Number: KR-ELI_LILLY_AND_COMPANY-KR201008005725

PATIENT
  Sex: Female
  Weight: 66.9 kg

DRUGS (13)
  1. GEMCITABINE HCL [Suspect]
     Indication: BREAST CANCER
     Dosage: 1250 MG/M2, UNK
     Route: 065
     Dates: start: 20100426
  2. PACLITAXEL [Suspect]
     Indication: BREAST CANCER
     Dosage: 175 MG/M2, UNKNOWN
     Route: 065
     Dates: start: 20100426
  3. VACCINIUM MYRTILLUS [Concomitant]
     Indication: MACULAR DEGENERATION
     Dosage: 170 MG, UNK
     Dates: start: 20090101
  4. REBAMIPIDE [Concomitant]
     Indication: MACULAR DEGENERATION
     Dosage: 100 MG, UNK
     Dates: start: 20090101
  5. SARPOGRELATE HYDROCHLORIDE [Concomitant]
     Indication: MACULAR DEGENERATION
     Dosage: 100 MG, UNK
     Dates: start: 20090101
  6. KALLIDINOGENASE [Concomitant]
     Indication: MACULAR DEGENERATION
     Dosage: 50 IU, UNK
     Dates: start: 20090101
  7. MAGMIL [Concomitant]
     Indication: CONSTIPATION
     Dosage: 500 MG, UNK
     Dates: start: 20100810
  8. PREGABALIN [Concomitant]
     Indication: PERIPHERAL SENSORY NEUROPATHY
     Dosage: 75 MG, UNK
     Dates: start: 20100721
  9. ACETAMINOPHEN [Concomitant]
     Indication: BREAST PAIN
     Dosage: 500 MG, UNK
     Dates: start: 20100814
  10. ZOLEDRONIC ACID [Concomitant]
     Indication: METASTASES TO BONE
     Dosage: 4 MG, UNK
     Dates: start: 20100811
  11. CALCIUM CARBONATE W/VITAMIN D /00944201/ [Concomitant]
     Indication: METASTASES TO BONE
     Dosage: 1500MG (CACO3) AND 400IU (VITA D)
     Dates: start: 20090921
  12. DEXAMETHASONE [Concomitant]
     Indication: PROPHYLAXIS
     Dosage: 4 MG, UNK
     Dates: start: 20100811
  13. FAMOTIDINE [Concomitant]
     Indication: PROPHYLAXIS
     Dosage: 20 MG, UNK
     Dates: start: 20100426

REACTIONS (2)
  - ANAL FISSURE [None]
  - PYREXIA [None]
